FAERS Safety Report 8321228-4 (Version None)
Quarter: 2012Q2

REPORT INFORMATION
  Report Type: 
  Country: None (occurrence: None)
  Receive Date: 20120430
  Receipt Date: 20120420
  Transmission Date: 20120825
  Serious: Yes (Hospitalization)
  Sender: FDA-Public Use
  Company Number: GB-JNJFOC-20120411264

PATIENT
  Age: 65 Year
  Sex: Female

DRUGS (6)
  1. CO-DYDRAMOL [Suspect]
     Indication: PRODUCT USED FOR UNKNOWN INDICATION
     Route: 065
  2. HEPARIN [Concomitant]
     Route: 050
  3. IRON DEXTRAN [Concomitant]
     Indication: ANAEMIA
     Route: 048
  4. DURAGESIC-100 [Suspect]
     Route: 062
     Dates: start: 20120415
  5. DURAGESIC-100 [Suspect]
     Indication: PRODUCT USED FOR UNKNOWN INDICATION
     Route: 062
     Dates: end: 20120413
  6. MORPHINE [Suspect]
     Indication: PRODUCT USED FOR UNKNOWN INDICATION
     Route: 065
     Dates: start: 20120413

REACTIONS (2)
  - HIP ARTHROPLASTY [None]
  - INTESTINAL OBSTRUCTION [None]
